FAERS Safety Report 7635396-0 (Version None)
Quarter: 2011Q3

REPORT INFORMATION
  Report Type: 
  Country: None (occurrence: None)
  Receive Date: 20110726
  Receipt Date: 20110720
  Transmission Date: 20111222
  Serious: Yes (Death)
  Sender: FDA-Public Use
  Company Number: US-SANOFI-AVENTIS-2011SA040862

PATIENT
  Age: 82 Year
  Sex: Female

DRUGS (2)
  1. LANTUS [Suspect]
     Dosage: DOSE:170 UNIT(S)
     Route: 058
  2. SOLOSTAR [Suspect]

REACTIONS (1)
  - CORONARY ARTERY DISEASE [None]
